FAERS Safety Report 17153357 (Version 1)
Quarter: 2019Q4

REPORT INFORMATION
  Report Type: Spontaneous
  Country: IT (occurrence: IT)
  Receive Date: 20191213
  Receipt Date: 20191213
  Transmission Date: 20200122
  Serious: Yes (Death, Other)
  Sender: FDA-Public Use
  Company Number: IT-BRISTOL-MYERS SQUIBB COMPANY-BMS-2019-119207

PATIENT

DRUGS (2)
  1. NIVOLUMAB [Suspect]
     Active Substance: NIVOLUMAB
     Indication: PRIMARY MEDIASTINAL LARGE B-CELL LYMPHOMA
     Dosage: 240 MILLIGRAM, Q3WEEKS
     Route: 065
  2. ADCETRIS [Suspect]
     Active Substance: BRENTUXIMAB VEDOTIN
     Indication: PRIMARY MEDIASTINAL LARGE B-CELL LYMPHOMA
     Dosage: 1.8 MILLIGRAM/KILOGRAM, Q3WEEKS
     Route: 065

REACTIONS (3)
  - Sepsis [Fatal]
  - Haematotoxicity [Unknown]
  - Intentional product use issue [Unknown]
